FAERS Safety Report 6753588-X (Version None)
Quarter: 2010Q2

REPORT INFORMATION
  Report Type: 
  Country: None (occurrence: None)
  Receive Date: 20100528
  Receipt Date: 20100517
  Transmission Date: 20101027
  Serious: Yes (Hospitalization)
  Sender: FDA-Public Use
  Company Number: 597758

PATIENT
  Age: 50 Year
  Sex: Female

DRUGS (5)
  1. DACARBAZINE [Suspect]
     Indication: HODGKIN'S DISEASE
     Dosage: 652.5MG MILLIGRAM (S) INTRAVEOUS
     Route: 042
     Dates: start: 20100302
  2. DOXORUBICIN HCL [Suspect]
     Indication: HODGKIN'S DISEASE
     Dosage: 43.5MG MILLIGRAM (S) INTRAVENOUS
     Route: 042
     Dates: start: 20100302
  3. SULFAMETHOXAZOLE AND TRIMETHOPRIM [Suspect]
  4. LANSOPRAZOLE [Concomitant]
  5. NYSTATIN [Concomitant]

REACTIONS (2)
  - SKIN INFECTION [None]
  - STAPHYLOCOCCAL BACTERAEMIA [None]
